FAERS Safety Report 9006134 (Version 1)
Quarter: 2013Q1

REPORT INFORMATION
  Report Type: Spontaneous
  Country: US (occurrence: US)
  Receive Date: 20130109
  Receipt Date: 20130109
  Transmission Date: 20140127
  Serious: No
  Sender: FDA-Public Use
  Company Number: US-009507513-1301USA001975

PATIENT
  Age: 59 Year
  Sex: Male

DRUGS (4)
  1. VICTRELIS [Suspect]
     Indication: HEPATITIS C
     Dosage: 800 MG, TID
     Route: 048
     Dates: start: 20121025
  2. PEGASYS [Suspect]
     Indication: HEPATITIS C
  3. RIBASPHERE [Suspect]
     Indication: HEPATITIS C
     Dosage: 400 MG DAILY
  4. PROCRIT [Concomitant]
     Dosage: 40000 UNITS WEEKLY

REACTIONS (4)
  - Dehydration [Unknown]
  - Dry skin [Unknown]
  - Decreased appetite [Unknown]
  - Fatigue [Unknown]
